FAERS Safety Report 8075422-0 (Version None)
Quarter: 2012Q1

REPORT INFORMATION
  Report Type: 
  Country: None (occurrence: None)
  Receive Date: 20120127
  Receipt Date: 20120118
  Transmission Date: 20120608
  Serious: Yes (Other)
  Sender: FDA-Public Use
  Company Number: US-ABBOTT-12P-163-0890686-00

PATIENT
  Sex: Female
  Weight: 69.916 kg

DRUGS (22)
  1. VOLTAREN [Concomitant]
     Indication: RHEUMATOID ARTHRITIS
     Dosage: GEL
     Route: 061
  2. ACETAMINOPHEN AND HYDROCODONE BITARTRATE [Concomitant]
     Indication: BACK PAIN
     Dosage: 10/660MG
     Dates: start: 20040101
  3. ZOLPIDEM [Concomitant]
     Indication: SLEEP DISORDER THERAPY
  4. ACETAMINOPHEN W/BUTALBITAL [Concomitant]
     Indication: HEADACHE
  5. CLONIDINE HCL [Concomitant]
     Indication: HYPERTENSION
  6. ACETAMINOPHEN W/BUTALBITAL [Concomitant]
     Indication: HYPERSENSITIVITY
  7. PROMETHAZINE [Concomitant]
     Indication: NAUSEA
  8. PROMETHAZINE [Concomitant]
     Indication: MIGRAINE
  9. PRILOSEC [Concomitant]
     Indication: GASTROOESOPHAGEAL REFLUX DISEASE
  10. DURAGESIC-100 [Suspect]
     Indication: BACK PAIN
     Dosage: PATCH
  11. HYDROXYCHLOROQUINE SULFATE [Concomitant]
     Indication: RHEUMATOID ARTHRITIS
  12. HYDROCHLOROTHIAZIDE [Concomitant]
     Indication: HYPERTENSION
  13. ACETAMINOPHEN AND HYDROCODONE BITARTRATE [Concomitant]
     Indication: RHEUMATOID ARTHRITIS
  14. CITALOPRAM HYDROBROMIDE [Concomitant]
     Indication: DEPRESSION
     Dosage: IN THE MORNING
  15. GABAPENTIN [Concomitant]
     Indication: FIBROMYALGIA
  16. HUMIRA [Suspect]
     Indication: RHEUMATOID ARTHRITIS
     Dates: start: 20100101, end: 20110101
  17. HUMIRA [Suspect]
     Dates: start: 20110101
  18. SIMVASTATIN [Concomitant]
     Indication: BLOOD CHOLESTEROL INCREASED
  19. CLONAZEPAM [Concomitant]
     Indication: ANXIOLYTIC THERAPY
  20. BUPROPION HCL [Concomitant]
     Indication: DEPRESSION
     Dosage: IN THE MORNING
  21. ACETAMINOPHEN W/BUTALBITAL [Concomitant]
     Indication: MIGRAINE
  22. LISINOPRIL [Concomitant]
     Indication: HYPERTENSION

REACTIONS (33)
  - LOSS OF CONSCIOUSNESS [None]
  - FALL [None]
  - ABNORMAL SENSATION IN EYE [None]
  - POST-TRAUMATIC NECK SYNDROME [None]
  - BACK PAIN [None]
  - EYE PAIN [None]
  - LIMB INJURY [None]
  - OEDEMA PERIPHERAL [None]
  - ARTHRALGIA [None]
  - HEADACHE [None]
  - RHEUMATOID ARTHRITIS [None]
  - SOMNOLENCE [None]
  - PAIN [None]
  - HEAD INJURY [None]
  - HYPOTENSION [None]
  - BACK INJURY [None]
  - FACE INJURY [None]
  - HYPOPHAGIA [None]
  - CARTILAGE INJURY [None]
  - MEMORY IMPAIRMENT [None]
  - JOINT INJURY [None]
  - ROAD TRAFFIC ACCIDENT [None]
  - BLOOD PRESSURE SYSTOLIC DECREASED [None]
  - NECK PAIN [None]
  - HYPERTENSION [None]
  - BLOOD PRESSURE INCREASED [None]
  - JOINT DISLOCATION [None]
  - SCRATCH [None]
  - FOOT FRACTURE [None]
  - LACERATION [None]
  - CONTUSION [None]
  - YAWNING [None]
  - JOINT SWELLING [None]
